FAERS Safety Report 6667735-1 (Version None)
Quarter: 2010Q2

REPORT INFORMATION
  Report Type: 
  Country: None (occurrence: None)
  Receive Date: 20100405
  Receipt Date: 20100329
  Transmission Date: 20101027
  Serious: Yes (Other)
  Sender: FDA-Public Use
  Company Number: DE-BAYER-201017928GPV

PATIENT
  Age: 75 Year
  Sex: Female

DRUGS (16)
  1. ASPIRIN [Suspect]
     Indication: DRUG USE FOR UNKNOWN INDICATION
  2. PANTOPRAZOLE [Suspect]
     Indication: DRUG USE FOR UNKNOWN INDICATION
  3. VERTIGO-NEOGAMA [Suspect]
     Indication: DRUG USE FOR UNKNOWN INDICATION
  4. LISODURA [Concomitant]
  5. DIAZEPAM [Concomitant]
  6. NAFTI SANDOZ [Concomitant]
  7. SIMVALIP [Concomitant]
  8. TILIDIN [Concomitant]
  9. FUROSEMID [Concomitant]
  10. ATEHEXAL COMP [Concomitant]
  11. FLUNARIZIN [Concomitant]
  12. BUSCOPAN [Concomitant]
  13. SPIRONOLACTONE [Concomitant]
  14. VOLTAREN [Concomitant]
  15. NEDOLON [Concomitant]
  16. TORSEMIDE [Concomitant]

REACTIONS (1)
  - AUTOIMMUNE THROMBOCYTOPENIA [None]
